FAERS Safety Report 5579540-8 (Version None)
Quarter: 2008Q1

REPORT INFORMATION
  Report Type: 
  Country: None (occurrence: None)
  Receive Date: 20080102
  Receipt Date: 20071220
  Transmission Date: 20080703
  Serious: Yes (Hospitalization)
  Sender: FDA-Public Use
  Company Number: US-ELI_LILLY_AND_COMPANY-US200712004397

PATIENT
  Age: 51 Year
  Sex: Female

DRUGS (5)
  1. CYMBALTA [Suspect]
     Dosage: 60 MG, DAILY (1/D)
     Dates: start: 20070704, end: 20071201
  2. ALCOHOL [Concomitant]
  3. NORCO [Concomitant]
     Dosage: 10/325
  4. TRAZODONE HCL [Concomitant]
  5. GABAPENTIN [Concomitant]

REACTIONS (4)
  - ALCOHOLISM [None]
  - ANTIDEPRESSANT DRUG LEVEL [None]
  - DRUG WITHDRAWAL SYNDROME [None]
  - MOANING [None]
